FAERS Safety Report 19415159 (Version 1)
Quarter: 2021Q2

REPORT INFORMATION
  Report Type: Spontaneous
  Country: US (occurrence: US)
  Receive Date: 20210615
  Receipt Date: 20210615
  Transmission Date: 20210717
  Serious: No
  Sender: FDA-Public Use
  Company Number: US-BEH-2021132912

PATIENT
  Sex: Female

DRUGS (1)
  1. HIZENTRA [Suspect]
     Active Substance: HUMAN IMMUNOGLOBULIN G
     Indication: MYASTHENIA GRAVIS
     Dosage: 36 GRAM, QW (SUBCUTANEOUS VIA FOUR SITES)
     Route: 058

REACTIONS (3)
  - Infusion site extravasation [Unknown]
  - No adverse event [Unknown]
  - Off label use [Unknown]
